FAERS Safety Report 7480295-0 (Version None)
Quarter: 2011Q2

REPORT INFORMATION
  Report Type: 
  Country: None (occurrence: None)
  Receive Date: 20110512
  Receipt Date: 20110512
  Transmission Date: 20111010
  Serious: Yes (Other)
  Sender: FDA-Public Use
  Company Number: None

PATIENT
  Age: 53 Year
  Sex: Female
  Weight: 68.9467 kg

DRUGS (2)
  1. OMEPRAZOLE [Suspect]
     Indication: GASTROOESOPHAGEAL REFLUX DISEASE
     Dosage: 40 MG DAILY PO
     Route: 048
     Dates: start: 20100226, end: 20100303
  2. OMEPRAZOLE [Suspect]
     Indication: DYSPHAGIA
     Dosage: 40 MG DAILY PO
     Route: 048
     Dates: start: 20100226, end: 20100303

REACTIONS (2)
  - NAUSEA [None]
  - VOMITING [None]
